FAERS Safety Report 4848738-6 (Version None)
Quarter: 2005Q4

REPORT INFORMATION
  Report Type: 
  Country: None (occurrence: None)
  Receive Date: 20051206
  Receipt Date: 20051118
  Transmission Date: 20060501
  Serious: Yes (Hospitalization)
  Sender: FDA-Public Use
  Company Number: CA_050808555

PATIENT
  Age: 55 Year
  Sex: Female
  Weight: 61 kg

DRUGS (8)
  1. PEMETREXED (PEMETREXED) VIAL [Suspect]
     Indication: BREAST CANCER METASTATIC
     Dosage: 837.5 MG, OTHER, INTRAVENOUS
     Route: 042
     Dates: start: 20050622, end: 20050720
  2. GEMCITABINE HYDROCHLORIDE (GEMCITABINE HYDROCHLORIDE) VIAL [Suspect]
     Indication: BREAST CANCER METASTATIC
     Dosage: 2527 MG, OTHER, INTRAVENOUS
     Route: 042
     Dates: start: 20050622, end: 20050720
  3. VITAMIN B12 [Concomitant]
  4. FOLIC ACID [Concomitant]
  5. DEXAMETHASONE [Concomitant]
  6. ALLERGRA (FEXOFENADINE HYDROCHLORIDE) [Concomitant]
  7. SYMBICORT [Concomitant]
  8. CLODRONATE DISODIUM (CLODRONAE SODIUM) [Concomitant]

REACTIONS (3)
  - ANGIOPATHY [None]
  - CONDITION AGGRAVATED [None]
  - RAYNAUD'S PHENOMENON [None]
